FAERS Safety Report 16097072 (Version 2)
Quarter: 2019Q2

REPORT INFORMATION
  Report Type: Spontaneous
  Country: US (occurrence: US)
  Receive Date: 20190320
  Receipt Date: 20190402
  Transmission Date: 20190711
  Serious: Yes (Other)
  Sender: FDA-Public Use
  Company Number: US-EXELIXIS-CABO-19019465

PATIENT
  Sex: Female

DRUGS (2)
  1. CABOMETYX [Suspect]
     Active Substance: CABOZANTINIB S-MALATE
     Indication: COLON CANCER STAGE IV
     Dosage: 20 MG, UNK
  2. DURVALUMAB. [Suspect]
     Active Substance: DURVALUMAB
     Indication: COLON CANCER STAGE IV
     Dosage: 1500 MG, UNK

REACTIONS (2)
  - Off label use [Unknown]
  - Autoimmune pancreatitis [Recovering/Resolving]

NARRATIVE: CASE EVENT DATE: 20190221
